FAERS Safety Report 8990182 (Version 5)
Quarter: 2013Q3

REPORT INFORMATION
  Report Type: Report from Study
  Country: JP (occurrence: JP)
  Receive Date: 20121228
  Receipt Date: 20130708
  Transmission Date: 20140515
  Serious: Yes (Hospitalization)
  Sender: FDA-Public Use
  Company Number: JP-ABBOTT-12P-087-1005136-00

PATIENT
  Age: 61 Year
  Sex: Male
  Weight: 61.3 kg

DRUGS (17)
  1. HUMIRA [Suspect]
     Indication: RHEUMATOID ARTHRITIS
     Route: 058
     Dates: start: 20120112, end: 20120912
  2. HUMIRA [Suspect]
     Dates: start: 20121015, end: 20121015
  3. HUMIRA [Suspect]
     Dates: start: 20121113
  4. CLARITHROMYCIN [Suspect]
     Indication: PNEUMONIA
     Route: 048
     Dates: start: 20121010, end: 20121016
  5. CRAVIT [Suspect]
     Indication: PNEUMONIA
     Route: 048
     Dates: start: 20121010, end: 20121016
  6. METHOTREXATE [Concomitant]
     Indication: RHEUMATOID ARTHRITIS
     Route: 048
     Dates: start: 20111223, end: 20121003
  7. METHOTREXATE [Concomitant]
     Dates: start: 20121114
  8. FOLIC ACID [Concomitant]
     Indication: ADVERSE REACTION
     Route: 048
     Dates: start: 20111213
  9. FOLIC ACID [Concomitant]
     Indication: PROPHYLAXIS
  10. PREDNISOLONE [Concomitant]
     Indication: RHEUMATOID ARTHRITIS
     Route: 048
     Dates: start: 20120309, end: 20121019
  11. IRSOGLADINE MALEATE [Concomitant]
     Indication: GASTRITIS PROPHYLAXIS
     Route: 048
     Dates: start: 20120308
  12. ASPIRIN [Concomitant]
     Indication: ANGINA PECTORIS
     Route: 048
     Dates: start: 20111213
  13. ROSUVASTATIN CALCIUM [Concomitant]
     Indication: HYPERLIPIDAEMIA
     Route: 048
     Dates: start: 20111213
  14. CELECOXIB [Concomitant]
     Indication: RHEUMATOID ARTHRITIS
     Route: 048
     Dates: end: 20120208
  15. CELECOXIB [Concomitant]
     Route: 048
     Dates: start: 20120511, end: 20120613
  16. CELECOXIB [Concomitant]
     Route: 048
     Dates: start: 20120614, end: 20120718
  17. CELECOXIB [Concomitant]
     Route: 048
     Dates: start: 20121102, end: 20121212

REACTIONS (3)
  - Henoch-Schonlein purpura [Recovered/Resolved]
  - Pneumonia [Recovering/Resolving]
  - Staphylococcal infection [Unknown]
